FAERS Safety Report 18100965 (Version 3)
Quarter: 2020Q3

REPORT INFORMATION
  Report Type: Spontaneous
  Country: NL (occurrence: NL)
  Receive Date: 20200731
  Receipt Date: 20200824
  Transmission Date: 20201103
  Serious: Yes (Death, Hospitalization, Other)
  Sender: FDA-Public Use
  Company Number: NL-009507513-2007NLD011635

PATIENT
  Age: 49 Year
  Sex: Male

DRUGS (4)
  1. CISPLATIN. [Concomitant]
     Active Substance: CISPLATIN
  2. CARBOPLATIN. [Concomitant]
     Active Substance: CARBOPLATIN
  3. PEMBROLIZUMAB. [Suspect]
     Active Substance: PEMBROLIZUMAB
     Indication: NON-SMALL CELL LUNG CANCER
     Dosage: 4 TREATMENTS OCCURRING EVERY 3 WEEKS
     Dates: start: 201811
  4. PEMETREXED DISODIUM [Concomitant]
     Active Substance: PEMETREXED DISODIUM

REACTIONS (3)
  - Haemophagocytic lymphohistiocytosis [Fatal]
  - Liver disorder [Unknown]
  - Hepatitis toxic [Unknown]
